FAERS Safety Report 17540398 (Version 1)
Quarter: 2020Q1

REPORT INFORMATION
  Report Type: Spontaneous
  Country: US (occurrence: US)
  Receive Date: 20200313
  Receipt Date: 20200313
  Transmission Date: 20200409
  Serious: Yes (Other)
  Sender: FDA-Public Use
  Company Number: US-PFIZER INC-2020108228

PATIENT
  Age: 66 Year
  Sex: Male
  Weight: 78.47 kg

DRUGS (1)
  1. LIPITOR [Suspect]
     Active Substance: ATORVASTATIN CALCIUM
     Indication: BLOOD CHOLESTEROL ABNORMAL
     Dosage: 20 MG, 1X/DAY (20MG ONCE A DAY IN THE EVENING BY MOUTH)
     Route: 048
     Dates: end: 20200308

REACTIONS (7)
  - Rash macular [Recovering/Resolving]
  - Pruritus [Unknown]
  - Dermatomyositis [Unknown]
  - Perivascular dermatitis [Not Recovered/Not Resolved]
  - Transient acantholytic dermatosis [Not Recovered/Not Resolved]
  - Erythema [Unknown]
  - Rash [Unknown]

NARRATIVE: CASE EVENT DATE: 2019
